FAERS Safety Report 17346267 (Version 1)
Quarter: 2020Q1

REPORT INFORMATION
  Report Type: Report from Study
  Country: US (occurrence: US)
  Receive Date: 20200129
  Receipt Date: 20200129
  Transmission Date: 20200409
  Serious: No
  Sender: FDA-Public Use
  Company Number: US-EXELIXIS-CABO-19019582

PATIENT
  Age: 76 Year
  Sex: Male

DRUGS (9)
  1. LISINOPRIL. [Concomitant]
     Active Substance: LISINOPRIL
  2. JANUVIA [Concomitant]
     Active Substance: SITAGLIPTIN PHOSPHATE
  3. PIOGLITAZONE. [Concomitant]
     Active Substance: PIOGLITAZONE
     Dosage: UNK
  4. CABOMETYX [Suspect]
     Active Substance: CABOZANTINIB S-MALATE
     Indication: RENAL CELL CARCINOMA
     Dosage: 60 MG, QD
     Route: 048
     Dates: start: 201706
  5. CABOMETYX [Suspect]
     Active Substance: CABOZANTINIB S-MALATE
     Dosage: 60 MG, QOD
     Route: 048
     Dates: start: 201806
  6. MYRBETRIQ [Concomitant]
     Active Substance: MIRABEGRON
  7. LEVOTHYROXINE. [Concomitant]
     Active Substance: LEVOTHYROXINE
     Dosage: UNK
  8. INSULIN [Concomitant]
     Active Substance: INSULIN NOS
     Indication: TYPE 2 DIABETES MELLITUS
  9. MULTIVITAMINS, COMBINATIONS [Concomitant]
     Active Substance: VITAMINS

REACTIONS (1)
  - Dysphonia [Unknown]

NARRATIVE: CASE EVENT DATE: 201809
